FAERS Safety Report 15561107 (Version 1)
Quarter: 2018Q4

REPORT INFORMATION
  Report Type: Spontaneous
  Country: US (occurrence: US)
  Receive Date: 20181029
  Receipt Date: 20181029
  Transmission Date: 20190205
  Serious: No
  Sender: FDA-Public Use
  Company Number: US-PFIZER INC-2018438361

PATIENT
  Age: 38 Year
  Sex: Male

DRUGS (3)
  1. PREDNISONE. [Suspect]
     Active Substance: PREDNISONE
     Dosage: UNK
  2. CORTISONE [Suspect]
     Active Substance: CORTISONE\HYDROCORTISONE
     Dosage: UNK
  3. VARENICLINE TARTRATE [Suspect]
     Active Substance: VARENICLINE TARTRATE
     Dosage: UNK

REACTIONS (1)
  - Drug hypersensitivity [Unknown]
